FAERS Safety Report 24059304 (Version 1)
Quarter: 2024Q3

REPORT INFORMATION
  Report Type: Spontaneous
  Country: US (occurrence: US)
  Receive Date: 20240708
  Receipt Date: 20240708
  Transmission Date: 20241016
  Serious: Yes (Other)
  Sender: EPIC PHARM
  Company Number: US-EPICPHARMA-US-2024EPCLIT00807

PATIENT
  Age: 7 Decade
  Sex: Female

DRUGS (4)
  1. IRINOTECAN HYDROCHLORIDE [Suspect]
     Active Substance: IRINOTECAN HYDROCHLORIDE
     Indication: Adenocarcinoma pancreas
     Dosage: COMPLETED NINE CYCLES,50% IRINOTECAN DOSE REDUCTION AT CYCLE 3 AND A 75% REDUCTION AT CYCLE 4
  2. FLUOROURACIL [Suspect]
     Active Substance: FLUOROURACIL
     Indication: Adenocarcinoma pancreas
     Dosage: COMPLETED NINE CYCLES
  3. OXALIPLATIN [Suspect]
     Active Substance: OXALIPLATIN
     Indication: Adenocarcinoma pancreas
     Dosage: COMPLETED NINE CYCLES
  4. LEUCOVORIN [Concomitant]
     Active Substance: LEUCOVORIN\LEUCOVORIN CALCIUM
     Dosage: COMPLETED NINE CYCLES

REACTIONS (5)
  - Steatohepatitis [Unknown]
  - Cognitive disorder [Unknown]
  - Fatigue [Unknown]
  - Therapy partial responder [Unknown]
  - Product use in unapproved indication [Unknown]
